FAERS Safety Report 25254808 (Version 1)
Quarter: 2025Q2

REPORT INFORMATION
  Report Type: Spontaneous
  Country: US (occurrence: None)
  Receive Date: 20250430
  Receipt Date: 20250430
  Transmission Date: 20250716
  Serious: Yes (Hospitalization)
  Sender: FDA-CTU
  Company Number: None

PATIENT
  Age: 80 Year
  Sex: Male
  Weight: 72 kg

DRUGS (22)
  1. FLUOROURACIL [Suspect]
     Active Substance: FLUOROURACIL
     Dates: end: 20250414
  2. IRINOTECAN HYDROCHLORIDE [Suspect]
     Active Substance: IRINOTECAN HYDROCHLORIDE
     Dates: end: 20250414
  3. LEUCOVORIN CALCIUM [Suspect]
     Active Substance: LEUCOVORIN CALCIUM
     Dates: end: 20250414
  4. ELOXATIN [Suspect]
     Active Substance: OXALIPLATIN
     Dates: end: 20250414
  5. Arnitriptyline [Concomitant]
  6. Amlopdipine [Concomitant]
  7. ASPIRIN [Concomitant]
     Active Substance: ASPIRIN
  8. DEXAMETHASONE [Concomitant]
     Active Substance: DEXAMETHASONE
  9. Glucagon (Baqsirni) [Concomitant]
  10. HUMALOG KWIKPEN [Concomitant]
     Active Substance: INSULIN LISPRO
  11. HYDROCHLOROTHIAZIDE [Concomitant]
     Active Substance: HYDROCHLOROTHIAZIDE
  12. INSULIN NOS [Concomitant]
     Active Substance: INSULIN NOS
  13. INSULIN GLARGINE [Concomitant]
     Active Substance: INSULIN GLARGINE
  14. Levothyrozine [Concomitant]
  15. LIDOCAINE\PRILOCAINE [Concomitant]
     Active Substance: LIDOCAINE\PRILOCAINE
  16. LOPERAMIDE [Concomitant]
     Active Substance: LOPERAMIDE
  17. LOSARTAN [Concomitant]
     Active Substance: LOSARTAN
  18. Metforrnin [Concomitant]
  19. ONDANSETRON [Concomitant]
     Active Substance: ONDANSETRON
  20. Prochlorperaz:ine [Concomitant]
  21. TUMS [Concomitant]
     Active Substance: CALCIUM CARBONATE
  22. TAMSULOSIN [Concomitant]
     Active Substance: TAMSULOSIN

REACTIONS (7)
  - Pyrexia [None]
  - Decreased appetite [None]
  - Fatigue [None]
  - Chills [None]
  - Aspartate aminotransferase increased [None]
  - Alanine aminotransferase increased [None]
  - Blood alkaline phosphatase increased [None]

NARRATIVE: CASE EVENT DATE: 20250426
